FAERS Safety Report 16818420 (Version 1)
Quarter: 2019Q3

REPORT INFORMATION
  Report Type: Spontaneous
  Country: US (occurrence: US)
  Receive Date: 20190917
  Receipt Date: 20190917
  Transmission Date: 20191005
  Serious: No
  Sender: FDA-Public Use
  Company Number: US-SA-2019SA257075

PATIENT
  Age: 21 Year
  Sex: Female
  Weight: 104.31 kg

DRUGS (8)
  1. VITAMIN B12 [VITAMIN B12 NOS] [Concomitant]
     Active Substance: CYANOCOBALAMIN
  2. BIOTIN [Concomitant]
     Active Substance: BIOTIN
  3. VITAMIN D3 [Concomitant]
     Active Substance: CHOLECALCIFEROL
  4. ZYRTEC [LEVOCABASTINE HYDROCHLORIDE] [Concomitant]
  5. DUPIXENT [Suspect]
     Active Substance: DUPILUMAB
     Dosage: 1 DF
     Route: 058
     Dates: start: 201901
  6. VITAMIN C [Concomitant]
     Active Substance: ASCORBIC ACID
  7. FOLIC ACID. [Concomitant]
     Active Substance: FOLIC ACID
  8. PROBIOTIC ACIDOPHILUS [LACTOBACILLUS ACIDOPHILUS] [Concomitant]

REACTIONS (1)
  - Condition aggravated [Unknown]

NARRATIVE: CASE EVENT DATE: 2019
